FAERS Safety Report 7376631-6 (Version None)
Quarter: 2011Q1

REPORT INFORMATION
  Report Type: 
  Country: None (occurrence: None)
  Receive Date: 20110325
  Receipt Date: 20080909
  Transmission Date: 20110831
  Serious: Yes (Hospitalization, Other)
  Sender: FDA-Public Use
  Company Number: BE-ELI_LILLY_AND_COMPANY-BE200804004023

PATIENT
  Sex: Female
  Weight: 45 kg

DRUGS (3)
  1. STRATTERA [Suspect]
     Indication: ATTENTION DEFICIT/HYPERACTIVITY DISORDER
     Dosage: UNK, UNKNOWN
     Dates: start: 20061030
  2. STRATTERA [Suspect]
     Dosage: 1 DF, QD
     Route: 048
  3. STRATTERA [Suspect]
     Dosage: 60 MG, QD
     Route: 048

REACTIONS (2)
  - HYPERTENSION [None]
  - CEREBRAL HAEMORRHAGE [None]
